FAERS Safety Report 9490937 (Version 2)
Quarter: 2013Q3

REPORT INFORMATION
  Report Type: Spontaneous
  Country: US (occurrence: US)
  Receive Date: 20130830
  Receipt Date: 20130920
  Transmission Date: 20140515
  Serious: No
  Sender: FDA-Public Use
  Company Number: US-PFIZER INC-2013249933

PATIENT
  Age: 49 Year
  Sex: Female

DRUGS (4)
  1. NEURONTIN [Suspect]
     Dosage: UNK
  2. ETANERCEPT [Concomitant]
     Dosage: 50 MG, WEEKLY
  3. METHOTREXATE [Concomitant]
     Dosage: 10 MG, WEEKLY [2.5 MG 4 TAB/WK]
  4. NOREL AD [Concomitant]
     Dosage: 1 BID PRN

REACTIONS (2)
  - Drug hypersensitivity [Unknown]
  - Memory impairment [Unknown]
